FAERS Safety Report 16762142 (Version 3)
Quarter: 2019Q4

REPORT INFORMATION
  Report Type: Spontaneous
  Country: JP (occurrence: JP)
  Receive Date: 20190830
  Receipt Date: 20191226
  Transmission Date: 20200122
  Serious: Yes (Hospitalization, Other)
  Sender: FDA-Public Use
  Company Number: PHJP2019JP008331

PATIENT
  Age: 43 Year
  Sex: Male
  Weight: 80.7 kg

DRUGS (12)
  1. NIFEDIPINE. [Concomitant]
     Active Substance: NIFEDIPINE
     Indication: HYPERTENSION
     Dosage: 20 MG
     Route: 048
     Dates: start: 20120918
  2. TAKECAB [Concomitant]
     Active Substance: VONOPRAZAN FUMURATE
     Indication: GASTROOESOPHAGEAL REFLUX DISEASE
     Dosage: 20 MG
     Route: 048
     Dates: start: 20160617
  3. ZETIA [Concomitant]
     Active Substance: EZETIMIBE
     Indication: HYPERLIPIDAEMIA
     Dosage: 10 MG
     Route: 048
     Dates: start: 20100302
  4. PREDONINE [Suspect]
     Active Substance: PREDNISOLONE
     Indication: MYASTHENIA GRAVIS
     Dosage: 20 MG, UNK
     Route: 048
     Dates: start: 200107
  5. ALLOPURINOL. [Concomitant]
     Active Substance: ALLOPURINOL
     Indication: HYPERURICAEMIA
     Dosage: 100 MG
     Route: 048
     Dates: start: 20100817
  6. TAKECAB [Concomitant]
     Active Substance: VONOPRAZAN FUMURATE
     Indication: GASTRIC ULCER
  7. MYTELASE [Concomitant]
     Active Substance: AMBENONIUM CHLORIDE
     Indication: MYASTHENIA GRAVIS
     Dosage: 10 MG, TID
     Route: 048
     Dates: start: 200107
  8. METFORMIN HYDROCHLORIDE. [Concomitant]
     Active Substance: METFORMIN HYDROCHLORIDE
     Indication: TYPE 2 DIABETES MELLITUS
     Dosage: 250 MG
     Route: 048
     Dates: start: 20180330
  9. NEORAL [Suspect]
     Active Substance: CYCLOSPORINE
     Indication: MYASTHENIA GRAVIS
     Dosage: 200 MG, BID
     Route: 048
     Dates: start: 200904
  10. ASPARA POTASSIUM [Concomitant]
     Active Substance: POTASSIUM ASPARTATE
     Indication: HYPOKALAEMIA
     Dosage: 100 MG, TID
     Route: 048
     Dates: start: 200904
  11. GLAKAY [Concomitant]
     Active Substance: MENATETRENONE
     Indication: OSTEOPOROSIS
     Dosage: 15 MG, TID
     Route: 048
     Dates: start: 200904
  12. POVIDONE-IODINE. [Concomitant]
     Active Substance: POVIDONE-IODINE
     Indication: PHARYNGITIS
     Dosage: UNK
     Route: 049
     Dates: start: 20100105

REACTIONS (15)
  - Concomitant disease aggravated [Not Recovered/Not Resolved]
  - Cellulitis [Recovering/Resolving]
  - Peripheral swelling [Unknown]
  - Gastric ulcer haemorrhage [Recovering/Resolving]
  - Asthma [Not Recovered/Not Resolved]
  - Bacteraemia [Recovered/Resolved]
  - Hyperuricaemia [Not Recovered/Not Resolved]
  - Dermatophytosis of nail [Not Recovered/Not Resolved]
  - Product use in unapproved indication [Unknown]
  - Erythema [Unknown]
  - Renal impairment [Not Recovered/Not Resolved]
  - Dysstasia [Unknown]
  - Cellulitis [Recovered/Resolved]
  - Pain [Unknown]
  - Infection susceptibility increased [Not Recovered/Not Resolved]

NARRATIVE: CASE EVENT DATE: 200904
